FAERS Safety Report 21337267 (Version 1)
Quarter: 2022Q3

REPORT INFORMATION
  Report Type: Spontaneous
  Country: BE (occurrence: BE)
  Receive Date: 20220915
  Receipt Date: 20220915
  Transmission Date: 20221027
  Serious: Yes (Other)
  Sender: FDA-Public Use
  Company Number: None

PATIENT
  Age: 50 Year
  Sex: Female
  Weight: 66 kg

DRUGS (13)
  1. CARBOPLATIN [Suspect]
     Active Substance: CARBOPLATIN
     Indication: Product used for unknown indication
     Dates: end: 20210323
  2. Medrol 32MG Tablet [Concomitant]
     Indication: Product used for unknown indication
     Dosage: ^IN THE MORNING
     Route: 048
  3. PARACETAMOL EG 1 G [Concomitant]
     Indication: Pain
     Dosage: IF NECESSARY IN CASE OF PAIN, EVERY 6 HOURS.
  4. Bexsero SUSPENSION FOR INJECTION IN PRE-FILLED SYRINGE [Concomitant]
     Indication: Product used for unknown indication
     Dosage: 1ST VACCINE 2 WEEKS POSTOPERATIVELY, 2ND VACCINE 1 MONTH AFTER ADMINISTRATION OF 1ST VACCINE
     Route: 042
  5. Litican 50 mg, Tablet [Concomitant]
     Indication: Nausea
  6. BOOSTRIX [Concomitant]
     Active Substance: TETANUS TOXOID, REDUCED DIPHTHERIA TOXOID AND ACELLULAR PERTUSSIS VACCINE, ADSORBED ANTIGENS
     Indication: Tetanus immunisation
     Route: 042
  7. AUGMENTIN [Concomitant]
     Active Substance: AMOXICILLIN\CLAVULANATE POTASSIUM
     Indication: Product used for unknown indication
     Route: 048
  8. ENOXAPARIN SODIUM [Concomitant]
     Active Substance: ENOXAPARIN SODIUM
     Indication: Product used for unknown indication
     Dosage: AT 8 PM?UP TO 30 DAYS AFTER HOSPITAL DISCHARGE
     Route: 058
  9. MOVICOL SACHET, POWDER FOR ORAL SOLUTION [Concomitant]
     Indication: Constipation
  10. Ibuprofen EG 400 MG [Concomitant]
     Indication: Pain
     Dosage: UP TO 3X/DAY, 2ND CHOICE FOR PAIN AFTER PARACETAMOL
     Route: 048
  11. DIPROSONE 0,05 % CREAM [Concomitant]
     Indication: Product used for unknown indication
     Dosage: 1X/DAY NECK, 2X/DAY BREASTS
     Route: 003
  12. CETIRIZINE SANDOZ 10 MG [Concomitant]
     Indication: Product used for unknown indication
     Dosage: ^IN THE EVENING
     Route: 048
  13. Bisoprolol Apotex 2,5 MG Tablet [Concomitant]
     Indication: Product used for unknown indication
     Route: 048

REACTIONS (3)
  - Oxygen saturation decreased [Recovered/Resolved]
  - Angioedema [Recovered/Resolved]
  - Dyspnoea [Recovered/Resolved]

NARRATIVE: CASE EVENT DATE: 20210326
